FAERS Safety Report 15191734 (Version 1)
Quarter: 2018Q3

REPORT INFORMATION
  Report Type: Spontaneous
  Country: DE (occurrence: DE)
  Receive Date: 20180724
  Receipt Date: 20180724
  Transmission Date: 20181010
  Serious: Yes (Death)
  Sender: FDA-Public Use
  Company Number: DE-PFIZER INC-2015195438

PATIENT
  Age: 76 Year
  Sex: Male

DRUGS (1)
  1. METHOTREXATE SODIUM. [Suspect]
     Active Substance: METHOTREXATE SODIUM
     Dosage: 15 MG, DAILY (120 MG IN TOTAL FOR 8 DAYS)
     Route: 048

REACTIONS (3)
  - Mucosal inflammation [Unknown]
  - Pancytopenia [Fatal]
  - Medication error [Fatal]
